FAERS Safety Report 14398382 (Version 2)
Quarter: 2018Q2

REPORT INFORMATION
  Report Type: Spontaneous
  Country: DE (occurrence: DE)
  Receive Date: 20180116
  Receipt Date: 20180529
  Transmission Date: 20180711
  Serious: Yes (Other)
  Sender: FDA-Public Use
  Company Number: DE-ABBVIE-18K-062-2221586-00

PATIENT
  Age: 26 Year
  Sex: Female
  Weight: 105 kg

DRUGS (2)
  1. HUMIRA [Suspect]
     Active Substance: ADALIMUMAB
     Indication: HIDRADENITIS
     Route: 058
     Dates: start: 20170725
  2. CORTICOSTEROIDS [Concomitant]
     Active Substance: CORTICOSTEROID NOS
     Indication: PRODUCT USED FOR UNKNOWN INDICATION

REACTIONS (4)
  - Tumour marker abnormal [Unknown]
  - Cervical dysplasia [Not Recovered/Not Resolved]
  - Neoplasm malignant [Unknown]
  - Fatigue [Unknown]

NARRATIVE: CASE EVENT DATE: 20171117
